FAERS Safety Report 21912674 (Version 1)
Quarter: 2023Q1

REPORT INFORMATION
  Report Type: Spontaneous
  Country: US (occurrence: US)
  Receive Date: 20230125
  Receipt Date: 20230125
  Transmission Date: 20230417
  Serious: No
  Sender: FDA-Public Use
  Company Number: US-ALLERGAN-2221020US

PATIENT
  Sex: Female
  Weight: 48.987 kg

DRUGS (2)
  1. BOTOX COSMETIC [Suspect]
     Active Substance: ONABOTULINUMTOXINA
     Indication: Skin wrinkling
     Dosage: UNK UNK, SINGLE
     Dates: start: 20220624, end: 20220624
  2. Calcium with zinc [Concomitant]
     Indication: Osteoporosis

REACTIONS (6)
  - Pyrexia [Recovered/Resolved]
  - Pain of skin [Not Recovered/Not Resolved]
  - Sensitive skin [Not Recovered/Not Resolved]
  - Pain [Not Recovered/Not Resolved]
  - Injection site pain [Recovered/Resolved]
  - Injection site urticaria [Not Recovered/Not Resolved]

NARRATIVE: CASE EVENT DATE: 20020101
